FAERS Safety Report 13872359 (Version 2)
Quarter: 2017Q4

REPORT INFORMATION
  Report Type: Spontaneous
  Country: ES (occurrence: ES)
  Receive Date: 20170816
  Receipt Date: 20171004
  Transmission Date: 20180320
  Serious: Yes (Life-Threatening, Other)
  Sender: FDA-Public Use
  Company Number: ES-TEVA-795354ISR

PATIENT
  Age: 27 Year
  Sex: Female

DRUGS (3)
  1. AMOXICILLIN. [Suspect]
     Active Substance: AMOXICILLIN
     Indication: HELICOBACTER INFECTION
     Dosage: NO. OF SEPARATE DOSAGES: 1 - NO. OF UNITS PER INTERVAL: 8 - INTERVAL: HOUR - 1 COMPRIMIDO CADA
     Route: 048
     Dates: start: 20160801, end: 20160805
  2. CLARITROMICINA CINFA 500 MG COMPRIMIDOS RECUBIERTOS CON PELICULA EFG [Suspect]
     Active Substance: CLARITHROMYCIN
     Indication: HELICOBACTER INFECTION
     Dosage: NO. OF SEPARATE DOSAGES: 1 - NO. OF UNITS PER INTERVAL: 8 - INTERVAL: HOUR - 1 COMPRIMIDO CADA
     Route: 048
     Dates: start: 20160801, end: 20160805
  3. LEVOFLOXACINO MYLAN 500 MG COMPRIMIDOS RECUBIERTOS CON PELICULA EFG [Suspect]
     Active Substance: LEVOFLOXACIN
     Dosage: NO. OF SEPARATE DOSAGES: - NO. OF UNITS PER INTERVAL: 12 - INTERVAL: HOUR - 1 COMPRIMIDO, 2
     Route: 048
     Dates: start: 20160801, end: 20160805

REACTIONS (14)
  - Asthenia [Recovered/Resolved]
  - Tachycardia [Recovered/Resolved]
  - Photosensitivity reaction [Recovered/Resolved]
  - Headache [Recovered/Resolved]
  - Polyuria [Recovered/Resolved]
  - Insomnia [Recovered/Resolved]
  - Dizziness [Recovered/Resolved]
  - Dysgeusia [Recovered/Resolved]
  - Tendonitis [Recovering/Resolving]
  - Pruritus [Recovered/Resolved]
  - Hyperhidrosis [Recovered/Resolved]
  - Diarrhoea [Recovered/Resolved]
  - Rash [Recovered/Resolved]
  - Vision blurred [Recovered/Resolved]
